FAERS Safety Report 5505376-X (Version None)
Quarter: 2007Q4

REPORT INFORMATION
  Report Type: 
  Country: None (occurrence: None)
  Receive Date: 20071102
  Receipt Date: 20071020
  Transmission Date: 20080405
  Serious: Yes (Hospitalization)
  Sender: FDA-Public Use
  Company Number: IN-ELI_LILLY_AND_COMPANY-IN200710005210

PATIENT
  Age: 70 Year
  Sex: Female
  Weight: 77 kg

DRUGS (11)
  1. FORTEO [Suspect]
     Indication: OSTEOPOROSIS
     Dosage: 20 UG, DAILY (1/D)
     Route: 058
     Dates: start: 20061012, end: 20070101
  2. FORTEO [Suspect]
     Dates: start: 20070922, end: 20070101
  3. LOTENSIN [Concomitant]
     Dosage: 20 MG, DAILY (1/D)
     Route: 065
  4. NOVOLOG MIX 70/30 [Concomitant]
     Dosage: 12 IU, EACH MORNING
     Route: 065
  5. NOVOLOG MIX 70/30 [Concomitant]
     Dosage: 8 IU, EACH EVENING
     Route: 065
  6. MINIPRESS [Concomitant]
     Dosage: 5 MG, 2/D
     Route: 065
  7. FUROSEMIDE [Concomitant]
     Dosage: 10 MG, 2/D
     Route: 065
  8. ATORVASTATIN CALCIUM [Concomitant]
     Dosage: 5 MG, DAILY (1/D)
     Route: 065
  9. AMARYL [Concomitant]
     Dosage: 2 MG, 2/D
     Route: 065
  10. ARKAMIN [Concomitant]
     Dosage: UNK, 3/D
     Route: 065
  11. DILZEM [Concomitant]
     Dosage: 18 MG, DAILY (1/D)
     Route: 065

REACTIONS (3)
  - ANAEMIA [None]
  - BLOOD PARATHYROID HORMONE INCREASED [None]
  - DYSPNOEA [None]
